FAERS Safety Report 23308526 (Version 1)
Quarter: 2023Q4

REPORT INFORMATION
  Report Type: Report from Study
  Country: CN (occurrence: CN)
  Receive Date: 20231218
  Receipt Date: 20231218
  Transmission Date: 20240109
  Serious: Yes (Death, Hospitalization, Other)
  Sender: FDA-Public Use
  Company Number: CN-PFIZER INC-PV202300203709

PATIENT
  Age: 44 Year
  Sex: Female

DRUGS (3)
  1. TIGECYCLINE [Suspect]
     Active Substance: TIGECYCLINE
     Indication: Klebsiella infection
     Dosage: 100 MG (FIRST DOSE)
     Dates: start: 2020
  2. TIGECYCLINE [Suspect]
     Active Substance: TIGECYCLINE
     Dosage: 50 MG, 2X/DAY
     Dates: start: 2020
  3. MEROPENEM [Suspect]
     Active Substance: MEROPENEM
     Indication: Pneumonia klebsiella
     Dosage: 0.5 G, 3X/DAY

REACTIONS (3)
  - Pancreatitis acute [Fatal]
  - Intra-abdominal haemorrhage [Fatal]
  - Shock haemorrhagic [Fatal]
